FAERS Safety Report 5237317-7 (Version None)
Quarter: 2007Q1

REPORT INFORMATION
  Report Type: 
  Country: None (occurrence: None)
  Receive Date: 20070213
  Receipt Date: 20070209
  Transmission Date: 20070707
  Serious: Yes (Other)
  Sender: FDA-Public Use
  Company Number: AU-BRISTOL-MYERS SQUIBB COMPANY-13675541

PATIENT
  Sex: Male

DRUGS (1)
  1. MONOPRIL [Suspect]
     Dosage: DECREASED TO HALF THE DOSE BY MD.
     Route: 048

REACTIONS (2)
  - DIABETES MELLITUS NON-INSULIN-DEPENDENT [None]
  - RENAL FAILURE CHRONIC [None]
